FAERS Safety Report 19895231 (Version 1)
Quarter: 2021Q3

REPORT INFORMATION
  Report Type: Spontaneous
  Country: US (occurrence: US)
  Receive Date: 20210929
  Receipt Date: 20210929
  Transmission Date: 20211014
  Serious: No
  Sender: FDA-Public Use
  Company Number: None

PATIENT
  Age: 75 Year
  Sex: Male
  Weight: 108.86 kg

DRUGS (2)
  1. DULAGLUTIDE (DULAGLUTIDE 0.75MG/0.5ML INJ, SOLN PEN) [Suspect]
     Active Substance: DULAGLUTIDE
     Indication: DIABETES MELLITUS
     Dosage: ?          OTHER DOSE:0.75MG/0.5ML;?
     Route: 058
     Dates: start: 20200429, end: 20210316
  2. VICTOZA [Suspect]
     Active Substance: LIRAGLUTIDE
     Indication: DIABETES MELLITUS
     Dosage: ?          OTHER STRENGTH:60MG/ML, 3ML;?
     Route: 058
     Dates: end: 20210617

REACTIONS (1)
  - Increased appetite [None]

NARRATIVE: CASE EVENT DATE: 20200930
